FAERS Safety Report 8948127 (Version 1)
Quarter: 2012Q4

REPORT INFORMATION
  Report Type: Spontaneous
  Country: GB (occurrence: None)
  Receive Date: 20121126
  Receipt Date: 20121126
  Transmission Date: 20130627
  Serious: Yes (Disabling)
  Sender: FDA-Public Use
  Company Number: 2012AP003976

PATIENT
  Age: 48 Year
  Sex: Male

DRUGS (9)
  1. ALENDRONATE [Suspect]
     Indication: OSTEOPOROSIS PROPHYLAXIS
     Route: 048
     Dates: start: 20120528
  2. ADCAL D3 [Suspect]
     Dosage: 1 DF ; Unknown; PO; BID
     Route: 048
     Dates: start: 20120414
  3. AZATHIOPRINE [Suspect]
     Dosage: 75 MG; Unknown ; PO ; BID
     Route: 048
     Dates: start: 20120607
  4. LANSOPRAZOLE (LANSOPRAZOLE) [Suspect]
     Dosage: 15 MG ; Unknown; PO; QD:
     Route: 048
     Dates: start: 20120528
  5. PREDNISOLONE [Suspect]
     Route: 048
     Dates: start: 20120518
  6. PREDNISOLONE [Suspect]
     Route: 048
     Dates: start: 20120518
  7. BETNOVATE-C (BETNOVATE-C) [Concomitant]
  8. CORSODYL (CHLORHEXIDINE GLUCONATE) [Concomitant]
  9. DERMOL (DERMOVATE (CLOBETAZOL PROPIONATE) [Concomitant]

REACTIONS (2)
  - Temporomandibular joint syndrome [None]
  - Tremor [None]
